FAERS Safety Report 14111367 (Version 1)
Quarter: 2017Q4

REPORT INFORMATION
  Report Type: Spontaneous
  Country: GB (occurrence: GB)
  Receive Date: 20171020
  Receipt Date: 20171020
  Transmission Date: 20180321
  Serious: Yes (Other)
  Sender: FDA-Public Use
  Company Number: GB-MYLANLABS-2017M1065291

PATIENT
  Age: 82 Year
  Sex: Male
  Weight: 107 kg

DRUGS (7)
  1. MEMANTINE. [Suspect]
     Active Substance: MEMANTINE
     Indication: DEMENTIA ALZHEIMER^S TYPE
     Dosage: INCREASING DOSE 5MG 1ST WEEK, 10MG 2ND WEEK, 15MG DAY
     Route: 048
     Dates: start: 20170914, end: 20170921
  2. AMLODIPIN [Concomitant]
     Active Substance: AMLODIPINE BESYLATE
     Dosage: UNK
  3. SERTRALINE HYDROCHLORIDE. [Concomitant]
     Active Substance: SERTRALINE HYDROCHLORIDE
     Dosage: UNK
  4. MEMANTINE. [Suspect]
     Active Substance: MEMANTINE
     Dosage: INCREASING DOSE 5MG 1ST WEEK, 10MG 2ND WEEK, 15MG DAY
     Route: 048
     Dates: start: 20170927, end: 20170928
  5. MEMANTINE. [Suspect]
     Active Substance: MEMANTINE
     Dosage: INCREASING DOSE 5MG 1ST WEEK, 10MG 2ND WEEK, 15MG DAY
     Route: 048
     Dates: start: 20170921, end: 20170927
  6. FINASTERIDE. [Concomitant]
     Active Substance: FINASTERIDE
     Indication: BENIGN PROSTATIC HYPERPLASIA
     Dosage: UNK
  7. TAMSULOSIN HYDROCHLORIDE. [Concomitant]
     Active Substance: TAMSULOSIN HYDROCHLORIDE
     Indication: BENIGN PROSTATIC HYPERPLASIA
     Dosage: UNK

REACTIONS (2)
  - Suicidal ideation [Recovering/Resolving]
  - Agitation [Unknown]

NARRATIVE: CASE EVENT DATE: 20170927
